FAERS Safety Report 7456831-7 (Version None)
Quarter: 2011Q2

REPORT INFORMATION
  Report Type: 
  Country: None (occurrence: None)
  Receive Date: 20110504
  Receipt Date: 20110426
  Transmission Date: 20111010
  Serious: Yes (Hospitalization, Other)
  Sender: FDA-Public Use
  Company Number: TR-PAR PHARMACEUTICAL, INC-2011SCPR002936

PATIENT
  Age: 17 Year
  Sex: Male
  Weight: 63 kg

DRUGS (8)
  1. CONCERTA [Suspect]
     Dosage: 54 MG/DAY
     Route: 065
  2. CONCERTA [Suspect]
     Indication: ATTENTION DEFICIT/HYPERACTIVITY DISORDER
     Dosage: 27 MG/DAY
     Route: 065
  3. RISPERIDONE [Suspect]
     Indication: AGGRESSION
     Dosage: 1 MG/DAY IN TWO DIVIDED DOSES
     Route: 065
  4. RISPERIDONE [Suspect]
     Dosage: 0.75 MG/DAY
  5. RISPERIDONE [Suspect]
     Dosage: 2 MG/DAY
  6. RISPERIDONE [Suspect]
     Dosage: 2.5 MG/DAY
     Route: 065
  7. CONCERTA [Suspect]
     Dosage: 36 MG/DAY
     Route: 065
  8. ARIPIPRAZOLE [Suspect]
     Indication: AGGRESSION
     Dosage: 5 MG/DAY AT NIGHT

REACTIONS (1)
  - PSYCHOTIC DISORDER [None]
